FAERS Safety Report 6664515-8 (Version None)
Quarter: 2010Q2

REPORT INFORMATION
  Report Type: 
  Country: None (occurrence: None)
  Receive Date: 20100401
  Receipt Date: 20100322
  Transmission Date: 20101027
  Serious: Yes (Other)
  Sender: FDA-Public Use
  Company Number: US-PFIZER INC-2010014173

PATIENT
  Sex: Male
  Weight: 74.842 kg

DRUGS (2)
  1. CELEBREX [Suspect]
     Indication: MUSCLE RELAXANT THERAPY
     Dosage: 200 MG, 1X/DAY
     Dates: start: 20100113, end: 20100201
  2. CELEBREX [Suspect]
     Dosage: UNK
     Dates: start: 20100101, end: 20100201

REACTIONS (2)
  - ERYTHEMA [None]
  - RASH VESICULAR [None]
